FAERS Safety Report 25858064 (Version 1)
Quarter: 2025Q3

REPORT INFORMATION
  Report Type: Report from Study
  Country: CA (occurrence: CA)
  Receive Date: 20250929
  Receipt Date: 20250929
  Transmission Date: 20251021
  Serious: Yes (Other)
  Sender: CELLTRION
  Company Number: CA-CELLTRION INC.-2025CA034329

PATIENT

DRUGS (13)
  1. RITUXIMAB [Suspect]
     Active Substance: RITUXIMAB
     Indication: Neurosarcoidosis
     Route: 042
  2. RITUXIMAB [Suspect]
     Active Substance: RITUXIMAB
     Indication: Myelopathy
     Route: 042
  3. AMITRIPTYLINE [Concomitant]
     Active Substance: AMITRIPTYLINE
  4. CALCIUM [Concomitant]
     Active Substance: CALCIUM
  5. DEXILANT [Concomitant]
     Active Substance: DEXLANSOPRAZOLE
  6. KETOROLAC [Concomitant]
     Active Substance: KETOROLAC TROMETHAMINE
  7. METHYLPREDNISOLONE SODIUM SUCCINATE [Concomitant]
     Active Substance: METHYLPREDNISOLONE SODIUM SUCCINATE
     Route: 042
  8. MIRTAZAPINE [Concomitant]
     Active Substance: MIRTAZAPINE
  9. PREDNISONE [Concomitant]
     Active Substance: PREDNISONE
  10. RISEDRONATE SODIUM [Concomitant]
     Active Substance: RISEDRONATE SODIUM
  11. ZOLPIDEM TARTRATE [Concomitant]
     Active Substance: ZOLPIDEM TARTRATE
  12. TAMSULOSIN [Concomitant]
     Active Substance: TAMSULOSIN
  13. TYLENOL [Concomitant]
     Active Substance: ACETAMINOPHEN
     Indication: Premedication
     Route: 048

REACTIONS (3)
  - Heart rate increased [Unknown]
  - Appendix disorder [Unknown]
  - Intentional product use issue [Unknown]
